FAERS Safety Report 4904568-8 (Version None)
Quarter: 2006Q1

REPORT INFORMATION
  Report Type: 
  Country: None (occurrence: None)
  Receive Date: 20060208
  Receipt Date: 20060127
  Transmission Date: 20060701
  Serious: Yes (Hospitalization)
  Sender: FDA-Public Use
  Company Number: US-ROCHE-433732

PATIENT
  Sex: Female

DRUGS (1)
  1. CELLCEPT [Suspect]
     Indication: SYSTEMIC LUPUS ERYTHEMATOSUS
     Route: 065

REACTIONS (6)
  - BALANCE DISORDER [None]
  - BRAIN MASS [None]
  - LEUKOENCEPHALOPATHY [None]
  - MEMORY IMPAIRMENT [None]
  - NERVOUS SYSTEM DISORDER [None]
  - NUCLEAR MAGNETIC RESONANCE IMAGING BRAIN ABNORMAL [None]
